FAERS Safety Report 7985905-7 (Version None)
Quarter: 2011Q4

REPORT INFORMATION
  Report Type: 
  Country: None (occurrence: None)
  Receive Date: 20111216
  Receipt Date: 20111212
  Transmission Date: 20120403
  Serious: Yes (Death)
  Sender: FDA-Public Use
  Company Number: CA-PFIZER INC-2011302306

PATIENT
  Age: 48 Year
  Sex: Male

DRUGS (5)
  1. INDERAL [Suspect]
     Dosage: 40 MG, 3X/DAY
     Dates: start: 20071123
  2. CLOZARIL [Suspect]
     Indication: SCHIZOPHRENIA
     Dosage: 700 MG, DAILY
     Route: 048
     Dates: start: 19920330, end: 20110615
  3. ZYPREXA [Suspect]
     Dosage: 20 MG, 1X/DAY AT BEDTIME
     Dates: start: 20090224
  4. PHENERGAN [Suspect]
     Dosage: 50 TO 100MG AT BEDTIME
     Dates: start: 20071123
  5. LIPITOR [Concomitant]
     Dosage: 10 MG, 1X/DAY AT BEDTIME
     Dates: start: 20090224

REACTIONS (1)
  - DEATH [None]
